FAERS Safety Report 8850951 (Version 1)
Quarter: 2012Q4

REPORT INFORMATION
  Report Type: 
  Country: BR (occurrence: BR)
  Receive Date: 20121019
  Receipt Date: 20121019
  Transmission Date: 20130627
  Serious: Yes (Hospitalization)
  Sender: FDA-Public Use
  Company Number: BR-NOVOPROD-361928

PATIENT
  Age: 49 Year
  Sex: Female
  Weight: 75 kg

DRUGS (8)
  1. VICTOZA [Suspect]
     Indication: TYPE 2 DIABETES MELLITUS
     Dosage: 1.2 mg, qd
     Route: 058
     Dates: start: 201203
  2. NOVOLIN N PENFILL [Suspect]
     Indication: TYPE 2 DIABETES MELLITUS
     Dosage: 66 U, qd
     Route: 058
  3. BETASERC                           /00141801/ [Concomitant]
     Indication: DIZZINESS
     Dosage: 2 tablets daily
     Route: 048
     Dates: start: 20120924
  4. METFORMIN [Concomitant]
     Indication: TYPE 2 DIABETES MELLITUS
     Dosage: 3 Tab, qd
     Route: 048
  5. GLIMEPIRIDE [Concomitant]
     Indication: TYPE 2 DIABETES MELLITUS
     Dosage: 2 tablets daily
     Route: 048
     Dates: start: 20100409
  6. SERTRALINA [Concomitant]
     Indication: ANTIDEPRESSANT THERAPY
     Dosage: 1 tablet daily
     Route: 048
     Dates: start: 20120409
  7. PROMENSIL [Concomitant]
     Indication: HORMONE THERAPY
     Dates: start: 20111009
  8. LOSARTAN POTASSIUM AND HYDROCHLOROTHIAZIDE [Concomitant]
     Indication: HYPERTENSION
     Dosage: 1 Tab, qd
     Route: 048

REACTIONS (9)
  - Stupor [Not Recovered/Not Resolved]
  - Dry mouth [Not Recovered/Not Resolved]
  - Restless legs syndrome [Not Recovered/Not Resolved]
  - Generalised erythema [Not Recovered/Not Resolved]
  - Hallucination [Unknown]
  - Blood glucose increased [Unknown]
  - Restlessness [Unknown]
  - Dry mouth [Unknown]
  - Pain in extremity [Unknown]
